FAERS Safety Report 6962600-4 (Version None)
Quarter: 2010Q3

REPORT INFORMATION
  Report Type: 
  Country: None (occurrence: None)
  Receive Date: 20100831
  Receipt Date: 20100825
  Transmission Date: 20110219
  Serious: Yes (Death, Hospitalization, Other)
  Sender: FDA-Public Use
  Company Number: 2010US002894

PATIENT
  Age: 54 Year
  Sex: Male
  Weight: 84 kg

DRUGS (10)
  1. PROGRAF [Suspect]
     Indication: RENAL TRANSPLANT
     Dosage: 3 MG BID ORAL
     Route: 048
     Dates: start: 20010101, end: 20100501
  2. PREDNISONE [Concomitant]
  3. CELLCEPT [Concomitant]
  4. SEPTRA DS [Concomitant]
  5. ALLOPURINOL [Concomitant]
  6. LANTUS [Concomitant]
  7. NOVOLOG [Concomitant]
  8. SODIUM BICARBONATE IN PLASTIC CONTAINER [Concomitant]
  9. LASIX [Concomitant]
  10. PERCOCET [Concomitant]

REACTIONS (20)
  - ANKLE FRACTURE [None]
  - ASTHENIA [None]
  - CELLULITIS [None]
  - CHOLECYSTITIS ACUTE [None]
  - CHOLECYSTITIS CHRONIC [None]
  - COAGULOPATHY [None]
  - DECREASED APPETITE [None]
  - DYSPNOEA EXERTIONAL [None]
  - EPISTAXIS [None]
  - FATIGUE [None]
  - HYPERTENSIVE HEART DISEASE [None]
  - IRON DEFICIENCY ANAEMIA [None]
  - KIDNEY TRANSPLANT REJECTION [None]
  - KNEE ARTHROPLASTY [None]
  - OCCULT BLOOD POSITIVE [None]
  - OEDEMA PERIPHERAL [None]
  - OSTEOARTHRITIS [None]
  - RENAL FAILURE ACUTE [None]
  - URINARY TRACT INFECTION [None]
  - WEIGHT DECREASED [None]
